FAERS Safety Report 4848815-X (Version None)
Quarter: 2005Q4

REPORT INFORMATION
  Report Type: 
  Country: None (occurrence: None)
  Receive Date: 20051208
  Receipt Date: 20051128
  Transmission Date: 20060501
  Serious: Yes (Death)
  Sender: FDA-Public Use
  Company Number: JP-NOVOPROD-248973

PATIENT
  Age: 78 Year
  Sex: Male
  Weight: 70 kg

DRUGS (10)
  1. NOVOLIN 70/30 [Suspect]
     Indication: INSULIN-REQUIRING TYPE II DIABETES MELLITUS
     Dosage: 20 IU, QD
     Dates: start: 20040220, end: 20050510
  2. AMARYL [Concomitant]
     Indication: INSULIN-REQUIRING TYPE II DIABETES MELLITUS
     Dosage: 6 MG, QD
     Route: 048
     Dates: start: 20020527, end: 20020811
  3. BASEN [Concomitant]
     Indication: INSULIN-REQUIRING TYPE II DIABETES MELLITUS
     Dosage: .4 MG, QD
     Route: 048
     Dates: start: 20020811, end: 20030611
  4. BASEN [Concomitant]
     Dosage: .6 MG, QD
     Route: 048
     Dates: start: 20030612, end: 20040219
  5. BASEN [Concomitant]
     Dosage: .2 MG, QD
     Route: 048
     Dates: start: 20040220, end: 20050510
  6. PENFILL R CHU [Concomitant]
     Indication: INSULIN-REQUIRING TYPE II DIABETES MELLITUS
     Dosage: 12 IU, QD
     Dates: start: 20020812, end: 20020825
  7. PENFILL R CHU [Concomitant]
     Dosage: 14 IU, QD
     Dates: start: 20020826, end: 20030209
  8. PENFILL R CHU [Concomitant]
     Dosage: 18 IU, QD
     Dates: start: 20030210, end: 20031019
  9. PENFILL R CHU [Concomitant]
     Dosage: 20 IU, QD
     Dates: start: 20031020, end: 20040219
  10. DIOVANE [Concomitant]
     Indication: HYPERTENSION
     Dosage: 80 MG, QD
     Route: 048

REACTIONS (3)
  - PROSTATE CANCER METASTATIC [None]
  - SCIATICA [None]
  - URINARY RETENTION [None]
